FAERS Safety Report 7985123-2 (Version None)
Quarter: 2011Q4

REPORT INFORMATION
  Report Type: 
  Country: None (occurrence: None)
  Receive Date: 20111216
  Receipt Date: 20111207
  Transmission Date: 20120403
  Serious: Yes (Hospitalization, Disabling)
  Sender: FDA-Public Use
  Company Number: PHHY2011EC108383

PATIENT
  Sex: Female

DRUGS (2)
  1. TEGRETOL-XR [Suspect]
     Indication: CONVULSION
     Dosage: 400 MG, QD
     Route: 048
     Dates: start: 20110713
  2. BLAQUETA [Concomitant]
     Dosage: 81 MG, UNK

REACTIONS (2)
  - TENDON RUPTURE [None]
  - FALL [None]
